FAERS Safety Report 13873277 (Version 1)
Quarter: 2017Q3

REPORT INFORMATION
  Report Type: Spontaneous
  Country: IT (occurrence: IT)
  Receive Date: 20170816
  Receipt Date: 20170816
  Transmission Date: 20171127
  Serious: Yes (Other)
  Sender: FDA-Public Use
  Company Number: IT-PERRIGO-17IT025683

PATIENT
  Age: 9 Year

DRUGS (1)
  1. LEVOCETIRIZINE DIHYDROCHLORIDE. [Suspect]
     Active Substance: LEVOCETIRIZINE DIHYDROCHLORIDE
     Indication: RHINITIS ALLERGIC
     Dosage: 5 MG, QD
     Route: 048

REACTIONS (4)
  - Decreased interest [Recovered/Resolved]
  - Crying [Recovered/Resolved]
  - Obsessive thoughts [Recovered/Resolved]
  - Depression [Recovered/Resolved]
